FAERS Safety Report 9138295 (Version 1)
Quarter: 2013Q1

REPORT INFORMATION
  Report Type: Spontaneous
  Country: BE (occurrence: BE)
  Receive Date: 20130305
  Receipt Date: 20130305
  Transmission Date: 20140127
  Serious: Yes (Hospitalization)
  Sender: FDA-Public Use
  Company Number: BE-SP-2013-03475

PATIENT
  Age: 68 Year
  Sex: Male

DRUGS (1)
  1. BCG  THERAPEUTICS [Suspect]
     Indication: BLADDER CANCER
     Route: 043

REACTIONS (15)
  - Bovine tuberculosis [Unknown]
  - Multi-organ failure [Unknown]
  - Granulomatous liver disease [Unknown]
  - Renal failure acute [Unknown]
  - Cardiomegaly [Unknown]
  - Jaundice [Unknown]
  - Leukocytosis [Unknown]
  - Hypotension [Unknown]
  - Thrombocytopenia [Unknown]
  - Atrial fibrillation [Unknown]
  - Decreased appetite [Unknown]
  - Pyrexia [Unknown]
  - Chills [Unknown]
  - Malaise [Unknown]
  - Vomiting [Unknown]
